FAERS Safety Report 6164966-4 (Version None)
Quarter: 2009Q2

REPORT INFORMATION
  Report Type: 
  Country: None (occurrence: None)
  Receive Date: 20090423
  Receipt Date: 20090227
  Transmission Date: 20091009
  Serious: No
  Sender: FDA-Public Use
  Company Number: US-BAYER-200914940NA

PATIENT
  Age: 18 Year
  Sex: Female
  Weight: 64 kg

DRUGS (1)
  1. MIRENA [Suspect]
     Indication: CONTRACEPTION
     Dosage: CONTINUOUS
     Route: 015
     Dates: start: 20080101

REACTIONS (5)
  - AMENORRHOEA [None]
  - ANXIETY [None]
  - INSOMNIA [None]
  - IUCD COMPLICATION [None]
  - RESTLESSNESS [None]
